FAERS Safety Report 15827753 (Version 1)
Quarter: 2019Q1

REPORT INFORMATION
  Report Type: Spontaneous
  Country: US (occurrence: US)
  Receive Date: 20190115
  Receipt Date: 20190115
  Transmission Date: 20190417
  Serious: Yes (Other)
  Sender: FDA-Public Use
  Company Number: US-REGENERON PHARMACEUTICALS, INC.-2018-17485

PATIENT

DRUGS (3)
  1. EYLEA [Suspect]
     Active Substance: AFLIBERCEPT
     Dosage: 2MG/0.05ML, OS, LAST DOSE PRIOR TO THE EVENT.
     Route: 031
     Dates: start: 20180212, end: 20180212
  2. EYLEA [Suspect]
     Active Substance: AFLIBERCEPT
     Indication: NEOVASCULAR AGE-RELATED MACULAR DEGENERATION
     Dosage: 2 MG/0.05 ML,  OS, EVERY 4-6 WEEKS
     Route: 031
     Dates: start: 20170221, end: 20180213
  3. EYLEA [Suspect]
     Active Substance: AFLIBERCEPT
     Dosage: 2MG/0.05ML, OS, EVERY 4-6 WEEKS, RESUMED.
     Route: 031
     Dates: start: 20180410, end: 20180410

REACTIONS (2)
  - Non-infectious endophthalmitis [Recovered/Resolved]
  - Vision blurred [Recovered/Resolved]

NARRATIVE: CASE EVENT DATE: 20180213
